FAERS Safety Report 12673945 (Version 2)
Quarter: 2016Q4

REPORT INFORMATION
  Report Type: Spontaneous
  Country: US (occurrence: US)
  Receive Date: 20160822
  Receipt Date: 20161104
  Transmission Date: 20170207
  Serious: No
  Sender: FDA-Public Use
  Company Number: US-TEVA-685907USA

PATIENT
  Sex: Female

DRUGS (1)
  1. CLARAVIS [Suspect]
     Active Substance: ISOTRETINOIN
     Indication: ACNE
     Dosage: 60 MILLIGRAM DAILY;
     Route: 065
     Dates: start: 20160620, end: 201607

REACTIONS (2)
  - Full blood count abnormal [Unknown]
  - Blood cholesterol increased [Unknown]
